FAERS Safety Report 17677185 (Version 1)
Quarter: 2020Q2

REPORT INFORMATION
  Report Type: Spontaneous
  Country: SG (occurrence: SG)
  Receive Date: 20200416
  Receipt Date: 20200416
  Transmission Date: 20200714
  Serious: Yes (Death, Hospitalization)
  Sender: FDA-Public Use
  Company Number: SG-BAUSCH-BL-2020-010635

PATIENT
  Age: 82 Year
  Sex: Male

DRUGS (6)
  1. PREDNISOLONE. [Suspect]
     Active Substance: PREDNISOLONE
     Indication: ADRENAL INSUFFICIENCY
     Route: 065
     Dates: start: 201906, end: 201909
  2. HYDROCORTISONE. [Suspect]
     Active Substance: HYDROCORTISONE
     Dosage: DOSE REDUCED
     Route: 065
     Dates: start: 2016, end: 2016
  3. HYDROCORTISONE. [Suspect]
     Active Substance: HYDROCORTISONE
     Route: 065
     Dates: start: 2019
  4. PREDNISOLONE. [Suspect]
     Active Substance: PREDNISOLONE
     Route: 065
     Dates: start: 2019
  5. HYDROCORTISONE. [Suspect]
     Active Substance: HYDROCORTISONE
     Indication: ADRENAL INSUFFICIENCY
     Dosage: 20 MG IN THE MORNING AND 10 MG IN THE EVENING.
     Route: 065
     Dates: start: 20160316, end: 2016
  6. HYDROCORTISONE. [Suspect]
     Active Substance: HYDROCORTISONE
     Route: 065
     Dates: start: 2018, end: 201906

REACTIONS (8)
  - Enterococcal infection [Fatal]
  - Enterococcal bacteraemia [Fatal]
  - Encephalitis [Fatal]
  - Product administration error [Unknown]
  - Strongyloidiasis [Fatal]
  - Psoas abscess [Fatal]
  - CNS ventriculitis [Fatal]
  - Intervertebral discitis [Fatal]

NARRATIVE: CASE EVENT DATE: 2019
